FAERS Safety Report 16696309 (Version 1)
Quarter: 2019Q3

REPORT INFORMATION
  Report Type: Report from Study
  Country: GB (occurrence: GB)
  Receive Date: 20190813
  Receipt Date: 20190813
  Transmission Date: 20191004
  Serious: Yes (Other)
  Sender: FDA-Public Use
  Company Number: GB-MYLANLABS-2019M1074711

PATIENT
  Sex: Male

DRUGS (5)
  1. DIGOXIN. [Suspect]
     Active Substance: DIGOXIN
     Indication: TACHYCARDIA FOETAL
     Dosage: THE MOTHER RECEIVED FIRST DOSE OF DIGOXIN 500MICROG ON DAY 1
     Route: 064
  2. DIGOXIN. [Suspect]
     Active Substance: DIGOXIN
     Dosage: THE MOTHER RECEIVED FURTHER 2 DOSES OF DIGOXIN 250MICROG ON DAY 1
     Route: 064
  3. AMIODARONE [Suspect]
     Active Substance: AMIODARONE
     Indication: TACHYCARDIA FOETAL
     Dosage: UNK
     Route: 064
  4. FLECAINIDE [Suspect]
     Active Substance: FLECAINIDE
     Indication: TACHYCARDIA FOETAL
     Dosage: THE MOTHER RECEIVED 100MG FLECAINIDE THREE TIMES A DAY ON DAY 1
     Route: 064
  5. SOTALOL. [Suspect]
     Active Substance: SOTALOL
     Indication: TACHYCARDIA FOETAL
     Dosage: UNK
     Route: 064

REACTIONS (2)
  - Foetal exposure during pregnancy [Recovered/Resolved]
  - Drug ineffective [Unknown]
